FAERS Safety Report 15401799 (Version 1)
Quarter: 2018Q3

REPORT INFORMATION
  Report Type: Spontaneous
  Country: US (occurrence: US)
  Receive Date: 20180919
  Receipt Date: 20180919
  Transmission Date: 20181010
  Serious: No
  Sender: FDA-Public Use
  Company Number: US-PFIZER INC-2018376916

PATIENT
  Age: 59 Year
  Sex: Female
  Weight: 105 kg

DRUGS (7)
  1. IBRANCE [Suspect]
     Active Substance: PALBOCICLIB
     Dosage: 125 MG, 1X/DAY(125 MG CAPSULE ONE TIME A DAY)
  2. KLONOPIN [Concomitant]
     Active Substance: CLONAZEPAM
     Dosage: 2 MG
  3. NORCO [Concomitant]
     Active Substance: ACETAMINOPHEN\HYDROCODONE BITARTRATE
     Dosage: 1 DF, AS NEEDED (HYDROCODONE BITARTRATE 7.5MG]/[PARACETAMOL 325MG], EVERY 6 HOURS AS NEEDED)
     Route: 048
  4. ADVAIR HFA [Concomitant]
     Active Substance: FLUTICASONE PROPIONATE\SALMETEROL XINAFOATE
     Dosage: UNK
  5. LETROZOLE. [Concomitant]
     Active Substance: LETROZOLE
     Dosage: UNK
  6. ONDANSETRON [Concomitant]
     Active Substance: ONDANSETRON
     Dosage: UNK
  7. VITAMIN B 2 [Concomitant]
     Dosage: UNK

REACTIONS (2)
  - Back pain [Unknown]
  - Anxiety [Unknown]
